FAERS Safety Report 11285214 (Version 1)
Quarter: 2015Q3

REPORT INFORMATION
  Report Type: Spontaneous
  Country: CH (occurrence: CH)
  Receive Date: 20150720
  Receipt Date: 20150720
  Transmission Date: 20151125
  Serious: Yes (Death)
  Sender: FDA-Public Use
  Company Number: PHHY2015CH085607

PATIENT
  Age: 84 Year

DRUGS (1)
  1. CLINDAMYCIN [Suspect]
     Active Substance: CLINDAMYCIN\CLINDAMYCIN PHOSPHATE
     Indication: PEPTOSTREPTOCOCCUS INFECTION
     Route: 065

REACTIONS (2)
  - Septic shock [Fatal]
  - Device related infection [Fatal]
